FAERS Safety Report 9249072 (Version 1)
Quarter: 2013Q1

REPORT INFORMATION
  Report Type: Spontaneous
  Country: US (occurrence: None)
  Receive Date: 20130305
  Receipt Date: 20130305
  Transmission Date: 20140127
  Serious: Yes (Hospitalization)
  Sender: FDA-Public Use
  Company Number: 163-21880-12061721

PATIENT
  Age: 64 Year
  Sex: Female
  Weight: 78.47 kg

DRUGS (13)
  1. REVLIMID (LENALIDOMIDE) (25 MILLIGRAM, CAPSULES) [Suspect]
     Indication: PLASMA CELL MYELOMA
     Route: 048
     Dates: start: 20120517
  2. COREG (CARVEDILOL) [Concomitant]
  3. LISINORPIL (LISNOPRIL) [Concomitant]
  4. PRAVASTATIN (PRAVASTATIN) [Concomitant]
  5. PRADAA (DABIGATRAN EXTEXILATE MESILATE) [Concomitant]
  6. CALCIUM (CALCIUM) [Concomitant]
  7. VITAMIN B12 (CYANOCOBALAMIN) [Concomitant]
  8. VITAMIN C [Suspect]
  9. VITAMIN D (ERGOCALCIFEROL) [Concomitant]
  10. BIOTIN (BIOTIN) [Concomitant]
  11. AMITRIPTYLINE (AMITRIPTULINE) [Concomitant]
  12. DECADRON (DEXAMETHASONE) [Concomitant]
  13. CLONAZEPAM (CLONAZEPAM) (CLONAZEPAM) [Concomitant]

REACTIONS (2)
  - Hypokalaemia [None]
  - Muscle spasms [None]
